FAERS Safety Report 5056804-8 (Version None)
Quarter: 2006Q2

REPORT INFORMATION
  Report Type: 
  Country: None (occurrence: None)
  Receive Date: 20060619
  Receipt Date: 20060322
  Transmission Date: 20061013
  Serious: Yes (Life-Threatening, Hospitalization, Other)
  Sender: FDA-Public Use
  Company Number: WAES 0603USA03605

PATIENT
  Age: 77 Year
  Sex: Female

DRUGS (2)
  1. COZAAR [Suspect]
     Indication: HYPERTENSION
     Dosage: PO
     Route: 048
  2. TYLENOL [Concomitant]

REACTIONS (1)
  - ANGIONEUROTIC OEDEMA [None]
